FAERS Safety Report 8291946-5 (Version None)
Quarter: 2012Q2

REPORT INFORMATION
  Report Type: 
  Country: None (occurrence: None)
  Receive Date: 20120417
  Receipt Date: 20110712
  Transmission Date: 20120825
  Serious: No
  Sender: FDA-Public Use
  Company Number: US-ASTRAZENECA-2011SE41638

PATIENT
  Age: 55 Year
  Sex: Female

DRUGS (4)
  1. PRILOSEC [Suspect]
     Route: 048
  2. ZANTAC [Concomitant]
  3. NEXIUM [Suspect]
     Route: 048
  4. PREVACID [Concomitant]

REACTIONS (5)
  - DRUG DOSE OMISSION [None]
  - DYSPHONIA [None]
  - DYSPEPSIA [None]
  - ABDOMINAL DISTENSION [None]
  - DRUG INEFFECTIVE [None]
